FAERS Safety Report 5137130-5 (Version None)
Quarter: 2006Q4

REPORT INFORMATION
  Report Type: 
  Country: None (occurrence: None)
  Receive Date: 20061030
  Receipt Date: 20050705
  Transmission Date: 20070319
  Serious: No
  Sender: FDA-Public Use
  Company Number: US-GLAXOSMITHKLINE-A0564972A

PATIENT
  Age: 66 Year
  Sex: Male

DRUGS (3)
  1. ADVAIR HFA [Suspect]
     Indication: CHRONIC OBSTRUCTIVE PULMONARY DISEASE
     Dosage: 1PUFF TWICE PER DAY
     Route: 055
     Dates: start: 20050624, end: 20050704
  2. ADVAIR HFA [Suspect]
     Dosage: 1PUFF TWICE PER DAY
     Route: 055
     Dates: start: 20050901
  3. SPIRIVA [Concomitant]

REACTIONS (6)
  - ABDOMINAL PAIN UPPER [None]
  - CONTUSION [None]
  - DIARRHOEA [None]
  - FATIGUE [None]
  - NAUSEA [None]
  - VOMITING [None]
